FAERS Safety Report 6979647-4 (Version None)
Quarter: 2010Q3

REPORT INFORMATION
  Report Type: 
  Country: None (occurrence: None)
  Receive Date: 20100910
  Receipt Date: 20100910
  Transmission Date: 20110219
  Serious: No
  Sender: FDA-Public Use
  Company Number: None

PATIENT
  Sex: Female
  Weight: 73.4827 kg

DRUGS (2)
  1. ABILIFY [Suspect]
     Indication: PARANOIA
     Dosage: 20MG./30 QTY DAILY P.O.
     Route: 048
     Dates: start: 20100822
  2. ABILIFY [Suspect]
     Indication: PARANOIA
     Dosage: 20MG./30 QTY DAILY P.O.
     Route: 048
     Dates: start: 20100823

REACTIONS (1)
  - PALPITATIONS [None]
